FAERS Safety Report 9199977 (Version 2)
Quarter: 2013Q2

REPORT INFORMATION
  Report Type: Report from Study
  Country: US (occurrence: US)
  Receive Date: 20130329
  Receipt Date: 20130429
  Transmission Date: 20140414
  Serious: Yes (Hospitalization)
  Sender: FDA-Public Use
  Company Number: US-PFIZER INC-2013065613

PATIENT
  Sex: Male

DRUGS (18)
  1. CARBOPLATIN [Suspect]
     Dosage: 410 MG, X1
     Route: 042
     Dates: start: 20130119
  2. DOCETAXEL [Suspect]
     Dosage: 112 MG, X1
     Route: 042
     Dates: start: 20130119
  3. ABIRATERONE ACETATE [Suspect]
     Dosage: 1000 MG, 1X/DAY
     Route: 048
     Dates: start: 20121019, end: 20130116
  4. CO-TRIMOXAZOLE [Concomitant]
     Indication: CELLULITIS
     Dosage: 160 MG TMP/800 MG SM 1X/DAY
     Route: 048
     Dates: start: 20130202, end: 20130211
  5. CO-TRIMOXAZOLE [Concomitant]
     Indication: BONE LESION
  6. CO-TRIMOXAZOLE [Concomitant]
     Indication: SKIN LESION
  7. CITRACAL [Concomitant]
     Dosage: 1 TABLET, 2X/DAY
     Route: 048
  8. DORZOLAMIDE, TIMOLOL [Concomitant]
     Dosage: 2/0.5% 1 DROP TO THE LEFT EYE 2X/DAY
  9. FAMOTIDINE [Concomitant]
     Dosage: 20 MG, DAILY
     Route: 048
  10. FERROUS GLUCONATE [Concomitant]
     Dosage: 1 TAB 2X/DAY
     Route: 048
  11. LISINOPRIL [Concomitant]
     Dosage: 20 MG, 1X/DAY
     Route: 048
  12. LORATADINE [Concomitant]
     Indication: PRURITUS
     Dosage: 10 MG, PRN
     Route: 048
  13. LUPRON [Concomitant]
     Dosage: 45 MG, EVERY 6 MONS, LAST GIVEN 26NOV2012
     Route: 030
  14. MAGNESIUM [Concomitant]
     Dosage: 250 MG, DAILY
     Route: 048
  15. REGLAN [Concomitant]
     Indication: NAUSEA
     Dosage: 10 MG, Q6 HOURS PRN
     Route: 048
  16. REGLAN [Concomitant]
     Indication: VOMITING
  17. MORPHINE SULFATE IMMEDIATE RELEASE [Concomitant]
     Indication: PAIN
     Dosage: 15 MG Q4 HOURS PRN
     Route: 048
  18. OCUTABS [Concomitant]
     Dosage: 1 TABLET

REACTIONS (1)
  - Dehydration [Recovered/Resolved]
